FAERS Safety Report 14098134 (Version 2)
Quarter: 2018Q2

REPORT INFORMATION
  Report Type: Spontaneous
  Country: US (occurrence: US)
  Receive Date: 20171016
  Receipt Date: 20180411
  Transmission Date: 20180711
  Serious: No
  Sender: FDA-Public Use
  Company Number: US-AMGEN-USASP2017020633

PATIENT
  Age: 72 Year
  Sex: Female
  Weight: 53.97 kg

DRUGS (3)
  1. PROLIA [Suspect]
     Active Substance: DENOSUMAB
     Indication: OSTEOPOROSIS POSTMENOPAUSAL
     Dosage: UNK
     Route: 065
     Dates: start: 20140212
  2. GABAPENTIN. [Concomitant]
     Active Substance: GABAPENTIN
  3. ACTONEL [Concomitant]
     Active Substance: RISEDRONATE SODIUM

REACTIONS (6)
  - Ear discomfort [Not Recovered/Not Resolved]
  - Toothache [Unknown]
  - Gastrooesophageal reflux disease [Unknown]
  - Paraesthesia [Not Recovered/Not Resolved]
  - Burning sensation [Unknown]
  - Muscle spasms [Unknown]

NARRATIVE: CASE EVENT DATE: 201406
